FAERS Safety Report 9092619 (Version 1)
Quarter: 2013Q1

REPORT INFORMATION
  Report Type: Spontaneous
  Country: US (occurrence: US)
  Receive Date: 20130201
  Receipt Date: 20130201
  Transmission Date: 20140127
  Serious: Yes (Other)
  Sender: FDA-Public Use
  Company Number: US-JNJFOC-20130116857

PATIENT
  Sex: 0

DRUGS (3)
  1. DOXORUBICIN [Suspect]
     Indication: PLASMA CELL MYELOMA
     Dosage: OVER 30-90 MIN ON DAYS 1, 4, 8, AND 11 OF EACH CYCLE
     Route: 042
  2. POMALIDOMIDE [Suspect]
     Indication: PLASMA CELL MYELOMA
     Dosage: 2, 3, OR 4 MG DAILY ON DAYS 1-21 OF EACH 28-DAY CYCLE
     Route: 048
  3. DEXAMETHASONE [Suspect]
     Indication: PLASMA CELL MYELOMA
     Dosage: OVER 30 MINUTES ON DAYS 1, 4, 8, AND 11 OF EACH CYCLE
     Route: 042

REACTIONS (1)
  - Lymphopenia [Unknown]
